FAERS Safety Report 20006142 (Version 1)
Quarter: 2021Q4

REPORT INFORMATION
  Report Type: Spontaneous
  Country: US (occurrence: US)
  Receive Date: 20211028
  Receipt Date: 20211028
  Transmission Date: 20220303
  Serious: No
  Sender: FDA-Public Use
  Company Number: US-CELGENE-USA-20211006106

PATIENT
  Sex: Female
  Weight: 61.29 kg

DRUGS (1)
  1. REVLIMID [Suspect]
     Active Substance: LENALIDOMIDE
     Indication: Bone disorder
     Dosage: 10 MILLIGRAM
     Route: 048
     Dates: start: 202110

REACTIONS (1)
  - Disease recurrence [Not Recovered/Not Resolved]
